FAERS Safety Report 23970727 (Version 7)
Quarter: 2024Q3

REPORT INFORMATION
  Report Type: Spontaneous
  Country: US (occurrence: US)
  Receive Date: 20240613
  Receipt Date: 20240925
  Transmission Date: 20241016
  Serious: No
  Sender: NOVARTIS
  Company Number: US-002147023-NVSC2024US123109

PATIENT
  Sex: Female

DRUGS (1)
  1. COSENTYX [Suspect]
     Active Substance: SECUKINUMAB
     Indication: Product used for unknown indication
     Dosage: 300 MG, QMO (150MGX2) (ROUTE: INJECTION)
     Route: 050

REACTIONS (5)
  - Product leakage [Unknown]
  - Packaging design issue [Unknown]
  - Device audio issue [Unknown]
  - Needle issue [Unknown]
  - Incorrect dose administered [Unknown]
